FAERS Safety Report 19589901 (Version 1)
Quarter: 2021Q3

REPORT INFORMATION
  Report Type: Spontaneous
  Country: FR (occurrence: FR)
  Receive Date: 20210721
  Receipt Date: 20210721
  Transmission Date: 20211014
  Serious: Yes (Other)
  Sender: FDA-Public Use
  Company Number: FR-PFIZER INC-2021847889

PATIENT
  Age: 33 Year
  Sex: Female
  Weight: 54 kg

DRUGS (5)
  1. LYRICA [Suspect]
     Active Substance: PREGABALIN
     Dosage: 200 MG, SINGLE
     Route: 048
     Dates: start: 20210618
  2. LAMICTAL [Suspect]
     Active Substance: LAMOTRIGINE
     Dosage: 300 MG, SINGLE
     Route: 048
     Dates: start: 20210618
  3. SERESTA [Suspect]
     Active Substance: OXAZEPAM
     Indication: MEDICATION ERROR
     Dosage: 10 MG, SINGLE
     Route: 048
     Dates: start: 20210618
  4. LAMICTAL [Suspect]
     Active Substance: LAMOTRIGINE
     Indication: MEDICATION ERROR
     Dosage: 300 MG, SINGLE
     Route: 048
     Dates: start: 20210618
  5. LYRICA [Suspect]
     Active Substance: PREGABALIN
     Indication: MEDICATION ERROR
     Dosage: 200 MG, SINGLE
     Route: 048
     Dates: start: 20210618

REACTIONS (4)
  - Diplopia [Unknown]
  - Vertigo [Unknown]
  - Somnolence [Unknown]
  - Off label use [Unknown]

NARRATIVE: CASE EVENT DATE: 20210618
